FAERS Safety Report 10610734 (Version 1)
Quarter: 2014Q4

REPORT INFORMATION
  Report Type: Report from Study
  Country: IT (occurrence: IT)
  Receive Date: 20141126
  Receipt Date: 20141126
  Transmission Date: 20150529
  Serious: Yes (Other)
  Sender: FDA-Public Use
  Company Number: IT-GLAXOSMITHKLINE-B1027362A

PATIENT
  Age: 51 Year
  Sex: Female

DRUGS (1)
  1. DABRAFENIB [Suspect]
     Active Substance: DABRAFENIB
     Indication: METASTATIC MALIGNANT MELANOMA
     Dosage: 300 MG OD FROM 13DEC2012 - 17DEC2012. 250 MG OD FROM 18DEC2012 - 03APR2014.
     Dates: start: 20121213, end: 20140403

REACTIONS (5)
  - Alopecia [Recovered/Resolved]
  - Squamous cell carcinoma of skin [Recovered/Resolved]
  - Keratoacanthoma [Recovered/Resolved]
  - Skin papilloma [Recovered/Resolved]
  - Hyperkeratosis [Recovered/Resolved]

NARRATIVE: CASE EVENT DATE: 20121213
